FAERS Safety Report 23874676 (Version 2)
Quarter: 2024Q3

REPORT INFORMATION
  Report Type: Spontaneous
  Country: GR (occurrence: GR)
  Receive Date: 20240520
  Receipt Date: 20240701
  Transmission Date: 20241017
  Serious: No
  Sender: PFIZER
  Company Number: GR-PFIZER INC-PV202400062702

PATIENT
  Age: 11 Year
  Sex: Female
  Weight: 38 kg

DRUGS (1)
  1. NGENLA [Suspect]
     Active Substance: SOMATROGON-GHLA
     Dosage: 0.66 MG/KG, WEEKLY
     Dates: start: 202404

REACTIONS (3)
  - Injection site pain [Unknown]
  - Pain in extremity [Unknown]
  - Insomnia [Unknown]

NARRATIVE: CASE EVENT DATE: 20240101
